FAERS Safety Report 15902132 (Version 16)
Quarter: 2020Q1

REPORT INFORMATION
  Report Type: Report from Study
  Country: US (occurrence: US)
  Receive Date: 20190201
  Receipt Date: 20200205
  Transmission Date: 20200409
  Serious: Yes (Life-Threatening, Other)
  Sender: FDA-Public Use
  Company Number: US-B.I. PHARMACEUTICALS,INC./RIDGEFIELD-2019-BI-004180

PATIENT
  Age: 70 Year
  Sex: Male

DRUGS (1)
  1. OFEV [Suspect]
     Active Substance: NINTEDANIB
     Indication: IDIOPATHIC PULMONARY FIBROSIS
     Dosage: TWICE A DAY 12 HOURS APART WITH FOOD FOR 90 DAYS
     Route: 048
     Dates: start: 20181001

REACTIONS (13)
  - Skin cancer [Unknown]
  - Diarrhoea [Not Recovered/Not Resolved]
  - Productive cough [Unknown]
  - Respiratory symptom [Unknown]
  - Rhinorrhoea [Unknown]
  - Dyspnoea [Not Recovered/Not Resolved]
  - Cardiac ablation [Unknown]
  - Haemorrhage urinary tract [Not Recovered/Not Resolved]
  - Sneezing [Unknown]
  - Pulmonary thrombosis [Not Recovered/Not Resolved]
  - Abdominal distension [Unknown]
  - Dyspnoea exertional [Unknown]
  - Malaise [Unknown]

NARRATIVE: CASE EVENT DATE: 201909
